FAERS Safety Report 8919888 (Version 1)
Quarter: 2012Q4

REPORT INFORMATION
  Report Type: 
  Country: FI (occurrence: FI)
  Receive Date: 20121121
  Receipt Date: 20121121
  Transmission Date: 20130627
  Serious: Yes (Other)
  Sender: FDA-Public Use
  Company Number: FI-PFIZER INC-2012289236

PATIENT
  Sex: Male

DRUGS (2)
  1. SUTENT [Suspect]
     Indication: METASTATIC RENAL CELL CARCINOMA
     Dosage: 25 mg, daily for nine days
     Dates: start: 200901, end: 2009
  2. SUTENT [Suspect]
     Dosage: 25 mg, 1x/day
     Dates: start: 200904, end: 200907

REACTIONS (4)
  - Comminuted fracture [Unknown]
  - Palmar-plantar erythrodysaesthesia syndrome [Unknown]
  - Stomatitis [Unknown]
  - Neutropenia [Unknown]
